FAERS Safety Report 6880979-9 (Version None)
Quarter: 2010Q2

REPORT INFORMATION
  Report Type: 
  Country: None (occurrence: None)
  Receive Date: 20100630
  Receipt Date: 20100420
  Transmission Date: 20101027
  Serious: Yes (Other)
  Sender: FDA-Public Use
  Company Number: 2010050662

PATIENT
  Age: 57 Year
  Sex: Female
  Weight: 72.6 kg

DRUGS (2)
  1. ZITHROMAX [Suspect]
     Indication: INFECTION
     Dosage: 250 MG, DAILY, ORAL
     Route: 048
     Dates: start: 20100412, end: 20100415
  2. ALBUTEROL [Concomitant]

REACTIONS (1)
  - RASH [None]
